FAERS Safety Report 9544126 (Version 2)
Quarter: 2014Q1

REPORT INFORMATION
  Report Type: Spontaneous
  Country: US (occurrence: None)
  Receive Date: 20130524
  Receipt Date: 20130724
  Transmission Date: 20141002
  Serious: Yes (Other)
  Sender: FDA-Public Use
  Company Number: PHEH2013US001822

PATIENT
  Age: 36 Year
  Sex: Female
  Weight: 60.8 kg

DRUGS (1)
  1. GILENYA [Suspect]
     Indication: MULTIPLE SCLEROSIS
     Dosage: 0.5 MG, QD, ORAL
     Route: 048
     Dates: start: 20120823

REACTIONS (3)
  - White blood cell count decreased [None]
  - Leukopenia [None]
  - Lymphocyte count decreased [None]
